FAERS Safety Report 10370126 (Version 1)
Quarter: 2014Q3

REPORT INFORMATION
  Report Type: Report from Study
  Country: AU (occurrence: AU)
  Receive Date: 20140808
  Receipt Date: 20140808
  Transmission Date: 20150326
  Serious: Yes (Other)
  Sender: FDA-Public Use
  Company Number: AU-BRISTOL-MYERS SQUIBB COMPANY-21265012

PATIENT
  Age: 61 Year
  Sex: Female

DRUGS (10)
  1. PREDNISOLONE. [Concomitant]
     Active Substance: PREDNISOLONE
  2. AROPAX [Concomitant]
     Active Substance: PAROXETINE HYDROCHLORIDE
  3. OXYCONTIN [Concomitant]
     Active Substance: OXYCODONE HYDROCHLORIDE
  4. OROXINE [Concomitant]
     Active Substance: LEVOTHYROXINE SODIUM
  5. METHOTREXATE [Concomitant]
     Active Substance: METHOTREXATE
  6. SOMAC [Concomitant]
     Active Substance: PANTOPRAZOLE SODIUM
  7. ORENCIA [Suspect]
     Active Substance: ABATACEPT
     Indication: RHEUMATOID ARTHRITIS
     Route: 042
     Dates: start: 20090316
  8. FOLIC ACID. [Concomitant]
     Active Substance: FOLIC ACID
  9. STEMETIL [Concomitant]
     Active Substance: PROCHLORPERAZINE MALEATE
  10. PANADEINE FORTE [Concomitant]
     Active Substance: ACETAMINOPHEN\CODEINE PHOSPHATE

REACTIONS (3)
  - Mouth ulceration [Unknown]
  - Respiratory tract infection [Unknown]
  - Pharyngeal ulceration [Unknown]
